FAERS Safety Report 22676201 (Version 2)
Quarter: 2025Q4

REPORT INFORMATION
  Report Type: Spontaneous
  Country: US (occurrence: US)
  Receive Date: 20230706
  Receipt Date: 20251223
  Transmission Date: 20260117
  Serious: No
  Sender: PADAGIS
  Company Number: US-PADAGIS-2023PAD00927

PATIENT

DRUGS (3)
  1. IMIQUIMOD [Suspect]
     Active Substance: IMIQUIMOD
     Indication: Molluscum contagiosum
     Dosage: UNK(7-8 WEEKS, THREE TIMES WEEKLY APPLIED OVER EACH LESION)
     Route: 061
  2. IMIQUIMOD [Suspect]
     Active Substance: IMIQUIMOD
     Dosage: UNK(INCREASED TO EVERY DAY AT 4 WEEKS NIGHTLY)
     Route: 061
  3. CANDIDA ALBICANS [Concomitant]
     Active Substance: CANDIDA ALBICANS
     Indication: Molluscum contagiosum
     Dosage: 0.3 ML( 2 SETS)
     Route: 065

REACTIONS (3)
  - Dermatitis psoriasiform [Recovered/Resolved]
  - Drug ineffective [Unknown]
  - Product use issue [Unknown]
